FAERS Safety Report 11461296 (Version 1)
Quarter: 2015Q3

REPORT INFORMATION
  Report Type: Spontaneous
  Country: US (occurrence: US)
  Receive Date: 20150831
  Receipt Date: 20150831
  Transmission Date: 20151125
  Serious: No
  Sender: FDA-Public Use
  Company Number: US-ELI_LILLY_AND_COMPANY-US201006007490

PATIENT
  Age: 68 Year
  Sex: Female

DRUGS (12)
  1. MAGNESIUM [Concomitant]
     Active Substance: MAGNESIUM
  2. ROPINIROLE. [Concomitant]
     Active Substance: ROPINIROLE
     Dosage: 25 MG, UNK
  3. SIMVASTATINE [Concomitant]
     Active Substance: SIMVASTATIN
     Dosage: 80 MG, UNK
  4. PLAVIX [Concomitant]
     Active Substance: CLOPIDOGREL BISULFATE
     Dosage: 75 MG, UNK
  5. ASPIRIN. [Concomitant]
     Active Substance: ASPIRIN
     Dosage: 81 MG, UNK
  6. DETROL LA [Concomitant]
     Active Substance: TOLTERODINE TARTRATE
     Dosage: 4 MG, UNK
  7. LORAZEPAM. [Concomitant]
     Active Substance: LORAZEPAM
     Dosage: 5 MG, UNK
  8. MICARDIS [Concomitant]
     Active Substance: TELMISARTAN
     Dosage: 40 MG, UNK
  9. CYMBALTA [Suspect]
     Active Substance: DULOXETINE HYDROCHLORIDE
     Indication: DEPRESSION
     Dosage: 60 MG, DAILY (1/D)
  10. CARVEDILOL. [Concomitant]
     Active Substance: CARVEDILOL
     Dosage: 12.5 MG, UNK
  11. ATENOLOL. [Concomitant]
     Active Substance: ATENOLOL
     Dosage: 50 MG, UNK
  12. LEVOTHYROXINE. [Concomitant]
     Active Substance: LEVOTHYROXINE
     Dosage: 0.88 UG, UNK

REACTIONS (3)
  - Nerve compression [Unknown]
  - Pain [Recovering/Resolving]
  - Incorrect dose administered [Recovered/Resolved]
